FAERS Safety Report 7273368-9 (Version None)
Quarter: 2011Q1

REPORT INFORMATION
  Report Type: 
  Country: None (occurrence: None)
  Receive Date: 20110203
  Receipt Date: 20100901
  Transmission Date: 20110831
  Serious: No
  Sender: FDA-Public Use
  Company Number: US-ABBOTT-10P-163-0669238-00

PATIENT

DRUGS (1)
  1. SYNTHROID [Suspect]
     Indication: PRODUCT USED FOR UNKNOWN INDICATION

REACTIONS (4)
  - DRUG DISPENSING ERROR [None]
  - PRODUCT COMMINGLING [None]
  - CONDITION AGGRAVATED [None]
  - WRONG DRUG ADMINISTERED [None]
